FAERS Safety Report 15654848 (Version 1)
Quarter: 2018Q4

REPORT INFORMATION
  Report Type: Spontaneous
  Country: US (occurrence: US)
  Receive Date: 20181126
  Receipt Date: 20181126
  Transmission Date: 20190205
  Serious: Yes (Hospitalization, Other)
  Sender: FDA-Public Use
  Company Number: US-APOTEX-2018AP025660

PATIENT
  Age: 2 Year
  Sex: Male

DRUGS (8)
  1. TOBRAMYCIN [D] [Suspect]
     Active Substance: TOBRAMYCIN
     Indication: BACTERAEMIA
  2. MEROPENEM. [Suspect]
     Active Substance: MEROPENEM
     Indication: PSEUDOMONAS INFECTION
     Dosage: UNK
     Route: 065
  3. POLYMYXIN B. [Suspect]
     Active Substance: POLYMYXIN B
     Indication: PSEUDOMONAS INFECTION
     Dosage: UNK
     Route: 065
  4. MEROPENEM. [Suspect]
     Active Substance: MEROPENEM
     Indication: BACTERAEMIA
  5. AZTREONAM. [Suspect]
     Active Substance: AZTREONAM
     Indication: PSEUDOMONAS INFECTION
     Dosage: UNK
     Route: 065
  6. TOBRAMYCIN [D] [Suspect]
     Active Substance: TOBRAMYCIN
     Indication: PSEUDOMONAS INFECTION
     Dosage: UNK
     Route: 065
  7. AZTREONAM. [Suspect]
     Active Substance: AZTREONAM
     Indication: BACTERAEMIA
  8. POLYMYXIN B. [Suspect]
     Active Substance: POLYMYXIN B
     Indication: BACTERAEMIA

REACTIONS (1)
  - Drug resistance [Unknown]
